FAERS Safety Report 13375360 (Version 4)
Quarter: 2018Q2

REPORT INFORMATION
  Report Type: Report from Study
  Country: CA (occurrence: CA)
  Receive Date: 20170327
  Receipt Date: 20180410
  Transmission Date: 20180711
  Serious: Yes (Other)
  Sender: FDA-Public Use
  Company Number: CA-BRISTOL-MYERS SQUIBB COMPANY-BMS-2017-024014

PATIENT
  Age: 57 Year
  Sex: Female

DRUGS (1)
  1. ABATACEPT [Suspect]
     Active Substance: ABATACEPT
     Indication: RHEUMATOID ARTHRITIS
     Dosage: 1000 MG, Q4WK
     Route: 042
     Dates: start: 20130221

REACTIONS (6)
  - Peripheral coldness [Unknown]
  - Rheumatoid arthritis [Unknown]
  - Aphthous ulcer [Recovering/Resolving]
  - Fatigue [Unknown]
  - Headache [Unknown]
  - Tooth disorder [Unknown]

NARRATIVE: CASE EVENT DATE: 20170314
